FAERS Safety Report 24793806 (Version 1)
Quarter: 2024Q4

REPORT INFORMATION
  Report Type: Spontaneous
  Country: CZ (occurrence: CZ)
  Receive Date: 20241231
  Receipt Date: 20241231
  Transmission Date: 20250115
  Serious: Yes (Other)
  Sender: ALKEM
  Company Number: None

PATIENT
  Age: 52 Year
  Sex: Male

DRUGS (10)
  1. TACROLIMUS [Interacting]
     Active Substance: TACROLIMUS
     Indication: Immunosuppressant drug therapy
     Dosage: 3 MILLIGRAM, OD
     Route: 065
  2. LAMIVUDINE [Interacting]
     Active Substance: LAMIVUDINE
     Indication: Antiviral treatment
     Dosage: 100 MILLIGRAM, OD
     Route: 065
  3. OMEPRAZOLE [Concomitant]
     Active Substance: OMEPRAZOLE
     Indication: Product used for unknown indication
     Dosage: 20 MILLIGRAM, QD
     Route: 065
  4. ABIRATERONE ACETATE [Concomitant]
     Active Substance: ABIRATERONE ACETATE
     Indication: Hormone-refractory prostate cancer
     Dosage: 1000 MILLIGRAM, QD
     Route: 065
     Dates: start: 202110
  5. DOCETAXEL [Concomitant]
     Active Substance: DOCETAXEL
     Indication: Metastases to pelvis
     Dosage: 60 MILLIGRAM/SQ. METER
     Route: 065
     Dates: start: 2022
  6. DOCETAXEL [Concomitant]
     Active Substance: DOCETAXEL
     Indication: Chemotherapy
  7. DOCETAXEL [Concomitant]
     Active Substance: DOCETAXEL
     Indication: Hormone-refractory prostate cancer
  8. DOCETAXEL [Concomitant]
     Active Substance: DOCETAXEL
     Indication: Metastases to retroperitoneum
  9. DOCETAXEL [Concomitant]
     Active Substance: DOCETAXEL
     Indication: Metastases to bone
  10. PREDNISONE [Concomitant]
     Active Substance: PREDNISONE
     Indication: Immunosuppressant drug therapy
     Dosage: 10 MILLIGRAM, QD
     Route: 065
     Dates: start: 202110

REACTIONS (2)
  - Chronic kidney disease [Unknown]
  - Nephropathy toxic [Unknown]

NARRATIVE: CASE EVENT DATE: 20120101
